FAERS Safety Report 10559979 (Version 1)
Quarter: 2014Q4

REPORT INFORMATION
  Report Type: Spontaneous
  Country: ES (occurrence: None)
  Receive Date: 20141030
  Receipt Date: 20141030
  Transmission Date: 20150529
  Serious: Yes (Hospitalization)
  Sender: FDA-Public Use
  Company Number: 2014JUB00177

PATIENT
  Age: 53 Year
  Sex: Female

DRUGS (5)
  1. ESCITALOPRAM [Suspect]
     Active Substance: ESCITALOPRAM OXALATE
     Indication: DEPRESSION
  2. OLANZAPINE (OLANZAPINE) UNKNOWN [Suspect]
     Active Substance: OLANZAPINE
  3. ENALAPRIL (ENALAPRIL) [Suspect]
     Active Substance: ENALAPRIL
  4. CLORAZEPATE DIPOTASSIUM. [Concomitant]
     Active Substance: CLORAZEPATE DIPOTASSIUM
  5. AGOMELATINE [Concomitant]
     Active Substance: AGOMELATINE

REACTIONS (7)
  - Anhedonia [None]
  - Insomnia [None]
  - Depression [None]
  - Depressed mood [None]
  - Suicidal ideation [None]
  - Decreased appetite [None]
  - Hyponatraemia [None]
